FAERS Safety Report 8189591-5 (Version None)
Quarter: 2012Q1

REPORT INFORMATION
  Report Type: 
  Country: None (occurrence: None)
  Receive Date: 20120307
  Receipt Date: 20120228
  Transmission Date: 20120608
  Serious: Yes (Other)
  Sender: FDA-Public Use
  Company Number: FR-UCBSA-052413

PATIENT
  Age: 67 Year
  Sex: Male

DRUGS (2)
  1. KEPPRA [Suspect]
     Indication: CONVULSION
     Dosage: UNKNOWN DOSE
     Route: 048
     Dates: start: 20080101, end: 20120101
  2. LAMICTAL [Concomitant]
     Dosage: UNKNOWN DOSE

REACTIONS (2)
  - STATUS EPILEPTICUS [None]
  - HALLUCINATION, AUDITORY [None]
